FAERS Safety Report 12703392 (Version 1)
Quarter: 2016Q3

REPORT INFORMATION
  Report Type: Spontaneous
  Country: US (occurrence: US)
  Receive Date: 20160831
  Receipt Date: 20160831
  Transmission Date: 20161109
  Serious: No
  Sender: FDA-Public Use
  Company Number: US-LEO PHARMA-243702

PATIENT
  Age: 75 Year
  Sex: Female

DRUGS (1)
  1. DAIVOBET [Suspect]
     Active Substance: BETAMETHASONE DIPROPIONATE\CALCIPOTRIENE
     Indication: ONYCHOLYSIS
     Route: 061

REACTIONS (7)
  - Drug administered at inappropriate site [Unknown]
  - Product use issue [Unknown]
  - Insomnia [Recovered/Resolved]
  - Discomfort [Recovered/Resolved]
  - Therapeutic response unexpected [Unknown]
  - Paraesthesia [Recovered/Resolved]
  - Pruritus [Recovering/Resolving]

NARRATIVE: CASE EVENT DATE: 20160824
